FAERS Safety Report 23200290 (Version 2)
Quarter: 2024Q1

REPORT INFORMATION
  Report Type: Spontaneous
  Country: US (occurrence: US)
  Receive Date: 20231118
  Receipt Date: 20240227
  Transmission Date: 20240409
  Serious: No
  Sender: FDA-Public Use
  Company Number: US-SA-SAC20231114001300

PATIENT
  Sex: Female

DRUGS (6)
  1. DUPIXENT [Suspect]
     Active Substance: DUPILUMAB
     Indication: Dermatitis atopic
     Dosage: 200 MG QOW
     Route: 058
     Dates: start: 20210824
  2. ALBUTEROL SULFATE [Concomitant]
     Active Substance: ALBUTEROL SULFATE
     Indication: Asthma
  3. FLUTICASONE [Concomitant]
     Active Substance: FLUTICASONE
  4. PIMECROLIMUS [Concomitant]
     Active Substance: PIMECROLIMUS
     Indication: Dermatitis atopic
  5. HYDROCORT [HYDROCORTISONE] [Concomitant]
  6. TRIAMCINOLONE [Concomitant]
     Active Substance: TRIAMCINOLONE

REACTIONS (4)
  - Dermatitis atopic [Unknown]
  - Eye irritation [Unknown]
  - Drug ineffective [Unknown]
  - Product dose omission issue [Unknown]
